FAERS Safety Report 7166132-2 (Version None)
Quarter: 2010Q4

REPORT INFORMATION
  Report Type: 
  Country: None (occurrence: None)
  Receive Date: 20101216
  Receipt Date: 20101208
  Transmission Date: 20110411
  Serious: Yes (Hospitalization)
  Sender: FDA-Public Use
  Company Number: IE-JNJFOC-20100808611

PATIENT
  Sex: Female

DRUGS (6)
  1. RISPERDAL CONSTA [Suspect]
     Indication: ILL-DEFINED DISORDER
     Route: 030
  2. RISPERDAL CONSTA [Suspect]
     Route: 030
  3. RISPERDAL CONSTA [Suspect]
     Route: 030
  4. RISPERDAL CONSTA [Suspect]
     Route: 030
  5. RISPERDAL CONSTA [Suspect]
     Route: 030
  6. PAROXETINE HCL [Concomitant]
     Indication: ILL-DEFINED DISORDER
     Route: 065

REACTIONS (3)
  - ABNORMAL BEHAVIOUR [None]
  - CONDITION AGGRAVATED [None]
  - INAPPROPRIATE SCHEDULE OF DRUG ADMINISTRATION [None]
